FAERS Safety Report 5573961-5 (Version None)
Quarter: 2007Q4

REPORT INFORMATION
  Report Type: 
  Country: None (occurrence: None)
  Receive Date: 20071220
  Receipt Date: 20071213
  Transmission Date: 20080405
  Serious: Yes (Life-Threatening, Hospitalization, Disabling)
  Sender: FDA-Public Use
  Company Number: 2007S1011670

PATIENT
  Age: 80 Year
  Sex: Female
  Weight: 48.0813 kg

DRUGS (8)
  1. ALLOPURINOL [Suspect]
     Indication: BLOOD URIC ACID INCREASED
     Dosage: 300 MG; DAILY; ORAL
     Route: 048
     Dates: start: 20071001, end: 20071018
  2. ALLOPURINOL [Suspect]
     Indication: GOUT
     Dosage: 300 MG; DAILY; ORAL
     Route: 048
     Dates: start: 20071001, end: 20071018
  3. COUMADIN [Concomitant]
  4. LASIX [Concomitant]
  5. SPIRONOLACTONE [Concomitant]
  6. DIGOXIN [Concomitant]
  7. ZEMPLAR [Concomitant]
  8. VESICARE [Concomitant]

REACTIONS (10)
  - ASTHENIA [None]
  - DEHYDRATION [None]
  - DIARRHOEA [None]
  - LETHARGY [None]
  - NONSPECIFIC REACTION [None]
  - PHARYNGOLARYNGEAL PAIN [None]
  - PYREXIA [None]
  - RASH GENERALISED [None]
  - SOMNOLENCE [None]
  - VOMITING [None]
